FAERS Safety Report 10523553 (Version 3)
Quarter: 2014Q4

REPORT INFORMATION
  Report Type: Report from Study
  Country: CA (occurrence: CA)
  Receive Date: 20141017
  Receipt Date: 20141103
  Transmission Date: 20150528
  Serious: Yes (Other)
  Sender: FDA-Public Use
  Company Number: CA-ROCHE-1250568

PATIENT
  Age: 58 Year
  Sex: Female
  Weight: 74.8 kg

DRUGS (15)
  1. ADVIL [Concomitant]
     Active Substance: IBUPROFEN
  2. SULFASALAZINE. [Concomitant]
     Active Substance: SULFASALAZINE
     Route: 048
  3. FOLIC ACID. [Concomitant]
     Active Substance: FOLIC ACID
     Route: 048
  4. TYLENOL [Concomitant]
     Active Substance: ACETAMINOPHEN
  5. ASA [Concomitant]
     Active Substance: ASPIRIN
     Route: 065
  6. ACETAMINOPHEN. [Concomitant]
     Active Substance: ACETAMINOPHEN
     Indication: PREMEDICATION
     Route: 048
     Dates: start: 20110914
  7. SERTRALINE [Concomitant]
     Active Substance: SERTRALINE HYDROCHLORIDE
     Indication: INSOMNIA
     Route: 048
  8. RITUXAN [Suspect]
     Active Substance: RITUXIMAB
     Indication: RHEUMATOID ARTHRITIS
     Dosage: PREVIOUS DOSE RECEIVED ON 20/MAR/2014.
     Route: 042
     Dates: end: 20110914
  9. FUROSEMIDE. [Concomitant]
     Active Substance: FUROSEMIDE
  10. PANTOLOC [Concomitant]
     Active Substance: PANTOPRAZOLE SODIUM
  11. PANTOPRAZOLE [Concomitant]
     Active Substance: PANTOPRAZOLE SODIUM
     Route: 048
  12. PREDNISONE. [Concomitant]
     Active Substance: PREDNISONE
     Route: 048
  13. DIPHENHYDRAMINE HCL [Concomitant]
     Active Substance: DIPHENHYDRAMINE HYDROCHLORIDE
     Indication: PREMEDICATION
     Route: 048
     Dates: start: 20110914
  14. FENTANYL. [Concomitant]
     Active Substance: FENTANYL
     Route: 065
  15. METHYLPREDNISOLONE. [Concomitant]
     Active Substance: METHYLPREDNISOLONE
     Indication: PREMEDICATION
     Route: 042
     Dates: start: 20110914

REACTIONS (10)
  - Pain [Not Recovered/Not Resolved]
  - Arthralgia [Recovered/Resolved]
  - Fluid retention [Unknown]
  - Hot flush [Unknown]
  - Joint swelling [Not Recovered/Not Resolved]
  - Drug withdrawal syndrome [Unknown]
  - Rheumatoid arthritis [Unknown]
  - Infusion related reaction [Unknown]
  - Blood pressure increased [Unknown]
  - Sensory disturbance [Unknown]

NARRATIVE: CASE EVENT DATE: 2013
